FAERS Safety Report 4808832-2 (Version None)
Quarter: 2005Q4

REPORT INFORMATION
  Report Type: 
  Country: None (occurrence: None)
  Receive Date: 20051021
  Receipt Date: 20030718
  Transmission Date: 20060501
  Serious: No
  Sender: FDA-Public Use
  Company Number: JP_030701439

PATIENT
  Age: 42 Year
  Sex: Female
  Weight: 57 kg

DRUGS (8)
  1. ZYPREXA [Suspect]
     Indication: SCHIZOPHRENIA
     Dosage: 20 MG DAY
     Dates: start: 20030624, end: 20030717
  2. SERENACE (HALOPERIODL) [Concomitant]
  3. LODOPIN (ZOTEPINE) [Concomitant]
  4. TEGRETOL [Concomitant]
  5. AKINETON [Concomitant]
  6. ROHIPNOL (FLUNITRAZEPAM) [Concomitant]
  7. PURSENNID (SENNA LEAF) [Concomitant]
  8. MAGNESIUM OXIDE [Concomitant]

REACTIONS (5)
  - HAEMATOCRIT DECREASED [None]
  - HAEMOGLOBIN DECREASED [None]
  - NEUTROPHIL COUNT DECREASED [None]
  - RED BLOOD CELL COUNT DECREASED [None]
  - WHITE BLOOD CELL COUNT DECREASED [None]
